FAERS Safety Report 11702767 (Version 1)
Quarter: 2015Q4

REPORT INFORMATION
  Report Type: Spontaneous
  Country: DE (occurrence: DE)
  Receive Date: 20151105
  Receipt Date: 20151105
  Transmission Date: 20160304
  Serious: Yes (Other)
  Sender: FDA-Public Use
  Company Number: DE-ACTAVIS-2015-19471

PATIENT
  Age: 75 Year
  Sex: Male

DRUGS (1)
  1. GABAPENTIN. [Suspect]
     Active Substance: GABAPENTIN
     Indication: HERPES ZOSTER
     Dosage: 100 MG, DAILY
     Route: 048

REACTIONS (14)
  - Fatigue [Unknown]
  - Respiratory tract infection [Unknown]
  - Decreased appetite [Unknown]
  - Pruritus [Unknown]
  - Ear infection [Unknown]
  - Coordination abnormal [Unknown]
  - Weight decreased [Unknown]
  - Rash [Unknown]
  - Dizziness [Unknown]
  - Headache [Unknown]
  - Asthenia [Unknown]
  - Myalgia [Unknown]
  - Constipation [Unknown]
  - Movement disorder [Unknown]

NARRATIVE: CASE EVENT DATE: 201508
